FAERS Safety Report 8803601 (Version 1)
Quarter: 2012Q4

REPORT INFORMATION
  Report Type: Report from Study
  Country: UA (occurrence: UA)
  Receive Date: 20120924
  Receipt Date: 20120924
  Transmission Date: 20130627
  Serious: Yes (Hospitalization)
  Sender: FDA-Public Use
  Company Number: UA-BRISTOL-MYERS SQUIBB COMPANY-16955841

PATIENT
  Age: 51 Year
  Sex: Male

DRUGS (5)
  1. CISPLATIN FOR INJ [Suspect]
     Indication: METASTATIC GASTRIC CANCER
     Dosage: Total dose in 21 days, Last dose:23Aug2012.
     Route: 042
     Dates: start: 20120302
  2. 5-FLUOROURACIL [Suspect]
     Indication: METASTATIC GASTRIC CANCER
     Dosage: Total dose in 21 days, Intrpd on:23Aug2012.
     Route: 042
     Dates: start: 20120302
  3. SORBIFER [Concomitant]
     Indication: ANAEMIA
     Dates: start: 20120215
  4. NEUROBION [Concomitant]
     Indication: PROPHYLAXIS
     Dates: start: 20120302
  5. THYMUS CELLS [Concomitant]
     Indication: ASTHENIA
     Dates: start: 20120817, end: 20120822

REACTIONS (1)
  - Gastric haemorrhage [Recovered/Resolved]
